FAERS Safety Report 6672085-3 (Version None)
Quarter: 2010Q2

REPORT INFORMATION
  Report Type: 
  Country: None (occurrence: None)
  Receive Date: 20100407
  Receipt Date: 20100407
  Transmission Date: 20101027
  Serious: Yes (Death)
  Sender: FDA-Public Use
  Company Number: None

PATIENT
  Sex: Female
  Weight: 100.3 kg

DRUGS (2)
  1. PEGYLATED INTERFERON ALFA 2 [Suspect]
     Indication: HEPATITIS C
     Dosage: 180 MCG WEEKLY SUBCUTANEOUS
     Route: 058
     Dates: start: 20100117
  2. RIBAVIRIN [Suspect]
     Indication: HEPATITIS C
     Dosage: 400 MG TWICE DAILY PO
     Route: 048
     Dates: start: 20100117

REACTIONS (1)
  - COMPLETED SUICIDE [None]
